FAERS Safety Report 5015463-0 (Version None)
Quarter: 2006Q2

REPORT INFORMATION
  Report Type: 
  Country: None (occurrence: None)
  Receive Date: 20060601
  Receipt Date: 20060420
  Transmission Date: 20061013
  Serious: Yes (Death, Other)
  Sender: FDA-Public Use
  Company Number: PHFR2006GB01485

PATIENT
  Age: 48 Year
  Sex: Female
  Weight: 69 kg

DRUGS (6)
  1. CLOZARIL [Suspect]
     Indication: SCHIZOPHRENIA
     Dosage: 300 MG, BID
     Route: 048
     Dates: start: 20031208
  2. HYOSCINE HBR HYT [Concomitant]
     Indication: SALIVARY HYPERSECRETION
     Dosage: 150MG/DAY
     Route: 048
  3. BETAHISTINE [Concomitant]
     Dosage: 1 UKN, TID
     Route: 048
  4. NIZATIDINE [Concomitant]
     Dosage: 150MG/NOCTE
     Route: 048
  5. METOCLOPRAMIDE [Concomitant]
     Dosage: 10 MG, TID
     Route: 048
  6. ACETAMINOPHEN W/ CODEINE [Concomitant]
     Dosage: 2 UKN, TID
     Route: 048

REACTIONS (7)
  - CONSTIPATION [None]
  - HEPATIC CONGESTION [None]
  - LARGE INTESTINAL OBSTRUCTION [None]
  - LARGE INTESTINE PERFORATION [None]
  - NEUTROPHIL COUNT INCREASED [None]
  - PERITONITIS [None]
  - PLATELET COUNT INCREASED [None]
